FAERS Safety Report 17427960 (Version 3)
Quarter: 2020Q1

REPORT INFORMATION
  Report Type: Report from Study
  Country: BE (occurrence: BE)
  Receive Date: 20200217
  Receipt Date: 20200320
  Transmission Date: 20200409
  Serious: Yes (Hospitalization)
  Sender: FDA-Public Use
  Company Number: BE-AMGEN-BELNI2019162888

PATIENT
  Sex: Male

DRUGS (6)
  1. SUMATRIPTAN. [Concomitant]
     Active Substance: SUMATRIPTAN
     Indication: MIGRAINE PROPHYLAXIS
     Dosage: UNK
     Route: 065
  2. ASPIRIN [ACETYLSALICYLIC ACID] [Concomitant]
     Active Substance: ASPIRIN
     Indication: ARRHYTHMIA
     Dosage: UNK
     Route: 065
     Dates: start: 2010, end: 20200122
  3. ERENUMAB [Suspect]
     Active Substance: ERENUMAB
     Indication: MIGRAINE PROPHYLAXIS
     Dosage: 70 MILLIGRAM
     Route: 065
  4. FLECAINIDE [Concomitant]
     Active Substance: FLECAINIDE
     Indication: ARRHYTHMIA
     Dosage: 150 MILLIGRAM
     Route: 065
     Dates: start: 2010, end: 20200122
  5. ERENUMAB [Suspect]
     Active Substance: ERENUMAB
     Indication: HEADACHE
     Dosage: 140 MILLIGRAM
     Route: 065
     Dates: start: 20200121
  6. ERENUMAB [Suspect]
     Active Substance: ERENUMAB
     Dosage: 70 MILLIGRAM
     Route: 058

REACTIONS (6)
  - Musculoskeletal pain [Unknown]
  - Headache [Recovered/Resolved]
  - Neck pain [Unknown]
  - Somnolence [Recovering/Resolving]
  - Myalgia [Unknown]
  - Vision blurred [Unknown]

NARRATIVE: CASE EVENT DATE: 20200122
